FAERS Safety Report 5369307-8 (Version None)
Quarter: 2007Q2

REPORT INFORMATION
  Report Type: 
  Country: None (occurrence: None)
  Receive Date: 20070620
  Receipt Date: 20070614
  Transmission Date: 20071010
  Serious: Yes (Life-Threatening)
  Sender: FDA-Public Use
  Company Number: 2007-01904

PATIENT
  Age: 65 Year
  Sex: Male

DRUGS (9)
  1. VELCADE [Suspect]
     Indication: MULTIPLE MYELOMA
     Dosage: 1.00 MG/M2, UNK, UNKNOWN
     Dates: start: 20070320
  2. DEXAMETHASONE TAB [Suspect]
     Indication: MULTIPLE MYELOMA
     Dosage: 20.00 MG, UNK, UNKNOWN
     Dates: start: 20070320, end: 20070324
  3. PRIMPERAN TAB [Concomitant]
  4. SULFAMETHOXAZOLE + TRIMETHOPRIM [Concomitant]
  5. CIPROXAN (CIPROFLOXACIN HYDROCHLORIDE) [Concomitant]
  6. BASEN (VOGLIBOSE) [Concomitant]
  7. AMARYL [Concomitant]
  8. LANSOPRAZOLE [Concomitant]
  9. MAGNESIUM OXIDE (MAGNESIUM OXIDE) [Concomitant]

REACTIONS (5)
  - HERPES ZOSTER [None]
  - HYPOAESTHESIA [None]
  - NAUSEA [None]
  - PLATELET COUNT DECREASED [None]
  - URINARY TRACT INFECTION [None]
